FAERS Safety Report 4572294-3 (Version None)
Quarter: 2005Q1

REPORT INFORMATION
  Report Type: 
  Country: None (occurrence: None)
  Receive Date: 20050203
  Receipt Date: 20050127
  Transmission Date: 20050727
  Serious: Yes (Life-Threatening, Hospitalization)
  Sender: FDA-Public Use
  Company Number: 2005AP00371

PATIENT
  Age: 76 Year
  Sex: Female

DRUGS (7)
  1. XYLOCAINE [Suspect]
     Indication: LOCAL ANAESTHESIA
     Dosage: 400 MG DAILY PO
     Route: 048
     Dates: start: 20041201, end: 20041201
  2. CERCINE [Suspect]
     Indication: ANAESTHESIA
     Dosage: 5 MG DAILY IV
     Route: 042
     Dates: start: 20041209, end: 20041209
  3. FERROMIA [Concomitant]
  4. PRECIPITATED CALCIUM CARBONATE [Concomitant]
  5. KALIMATE [Concomitant]
  6. NORVASC [Concomitant]
  7. CARDENALIN [Concomitant]

REACTIONS (4)
  - APNOEA [None]
  - DEPRESSED LEVEL OF CONSCIOUSNESS [None]
  - HYPERTENSIVE EMERGENCY [None]
  - SLEEP APNOEA SYNDROME [None]
